FAERS Safety Report 20661006 (Version 3)
Quarter: 2022Q3

REPORT INFORMATION
  Report Type: Spontaneous
  Country: JP (occurrence: JP)
  Receive Date: 20220331
  Receipt Date: 20220803
  Transmission Date: 20221027
  Serious: Yes (Other)
  Sender: FDA-Public Use
  Company Number: JP-BRISTOL-MYERS SQUIBB COMPANY-BMS-2021-136817

PATIENT
  Age: 71 Year
  Sex: Male

DRUGS (5)
  1. YERVOY [Suspect]
     Active Substance: IPILIMUMAB
     Indication: Non-small cell lung cancer
     Route: 041
     Dates: start: 20210927
  2. OPDIVO [Suspect]
     Active Substance: NIVOLUMAB
     Indication: Non-small cell lung cancer
     Route: 041
     Dates: start: 20210927
  3. CARBOPLATIN [Suspect]
     Active Substance: CARBOPLATIN
     Indication: Non-small cell lung cancer
     Route: 065
     Dates: start: 20210927
  4. PEMETREXED DISODIUM [Suspect]
     Active Substance: PEMETREXED DISODIUM
     Indication: Non-small cell lung cancer
     Route: 065
     Dates: start: 20210927
  5. PREDONINE [Concomitant]
     Active Substance: PREDNISOLONE
     Indication: Lichen planus
     Route: 048

REACTIONS (12)
  - Sepsis [Recovered/Resolved]
  - Rash [Unknown]
  - Vasculitis [Unknown]
  - Liver disorder [Unknown]
  - Pyrexia [Recovered/Resolved]
  - Inflammation [Recovering/Resolving]
  - Fibrin D dimer increased [Recovering/Resolving]
  - Microangiopathy [Unknown]
  - Dermatitis exfoliative generalised [Unknown]
  - Angular cheilitis [Unknown]
  - Angiopathy [Unknown]
  - Pruritus [Unknown]

NARRATIVE: CASE EVENT DATE: 20211002
